FAERS Safety Report 8174656-4 (Version None)
Quarter: 2012Q1

REPORT INFORMATION
  Report Type: 
  Country: None (occurrence: None)
  Receive Date: 20120227
  Receipt Date: 20120214
  Transmission Date: 20120608
  Serious: Yes (Hospitalization)
  Sender: FDA-Public Use
  Company Number: 2012SP008361

PATIENT
  Age: 58 Year
  Sex: Female

DRUGS (4)
  1. PEGINTERFERON ALFA-2B [Suspect]
  2. BOCEPREVIR (SCH-503034) [Suspect]
     Indication: HEPATITIS C
     Dosage: 800 MG;TID;PO
     Route: 048
     Dates: start: 20120201
  3. THYROHORMONE [Concomitant]
  4. RIBAVIRIN [Suspect]
     Indication: PRODUCT USED FOR UNKNOWN INDICATION

REACTIONS (2)
  - VERTIGO [None]
  - MIGRAINE [None]
